FAERS Safety Report 21517252 (Version 2)
Quarter: 2022Q4

REPORT INFORMATION
  Report Type: Spontaneous
  Country: JP (occurrence: JP)
  Receive Date: 20221028
  Receipt Date: 20221115
  Transmission Date: 20230113
  Serious: Yes (Hospitalization)
  Sender: FDA-Public Use
  Company Number: JP-ORPHANEU-2022005295

PATIENT

DRUGS (7)
  1. CARBAGLU [Suspect]
     Active Substance: CARGLUMIC ACID
     Indication: Methylmalonic aciduria
     Dosage: 800 MILLIGRAM PER DAY
     Route: 065
  2. LEVOCARNITINE [Concomitant]
     Active Substance: LEVOCARNITINE
     Indication: Methylmalonic aciduria
     Dosage: 3000 MILLIGRAM
     Route: 048
  3. LEVOCARNITINE [Concomitant]
     Active Substance: LEVOCARNITINE
     Dosage: 4500 MILLIGRAM
     Route: 048
  4. LEVOCARNITINE [Concomitant]
     Active Substance: LEVOCARNITINE
     Dosage: 6000 MILLIGRAM
     Route: 048
  5. LEVOCARNITINE [Concomitant]
     Active Substance: LEVOCARNITINE
     Dosage: 7500 MILLIGRAM
     Route: 048
  6. LEVOCARNITINE [Concomitant]
     Active Substance: LEVOCARNITINE
     Dosage: 9000 MILLIGRAM
     Route: 048
  7. LEVOCARNITINE [Concomitant]
     Active Substance: LEVOCARNITINE
     Dosage: 10500 MILLIGRAM
     Route: 048

REACTIONS (2)
  - Ammonia increased [Recovering/Resolving]
  - Vomiting [Recovering/Resolving]
